FAERS Safety Report 25841193 (Version 1)
Quarter: 2025Q3

REPORT INFORMATION
  Report Type: Spontaneous
  Country: US (occurrence: None)
  Receive Date: 20250923
  Receipt Date: 20250923
  Transmission Date: 20251021
  Serious: Yes (Disabling)
  Sender: FDA-CTU
  Company Number: None

PATIENT
  Age: 61 Year
  Sex: Female
  Weight: 45 kg

DRUGS (10)
  1. SUTAB [Suspect]
     Active Substance: MAGNESIUM SULFATE\POTASSIUM CHLORIDE\SODIUM SULFATE
     Indication: Bowel preparation
     Route: 048
     Dates: start: 20250915, end: 20250916
  2. SUTAB [Suspect]
     Active Substance: MAGNESIUM SULFATE\POTASSIUM CHLORIDE\SODIUM SULFATE
     Indication: Colonoscopy
  3. VITAMINS [Concomitant]
     Active Substance: VITAMINS
  4. PROBIOTICS NOS [Concomitant]
     Active Substance: PROBIOTICS NOS
  5. OMEGA 3 [Concomitant]
     Active Substance: CAPSAICIN
  6. Qunol [Concomitant]
  7. QUERCETIN [Concomitant]
     Active Substance: QUERCETIN
  8. chondritin [Concomitant]
  9. CALCIUM\VITAMIN D [Concomitant]
     Active Substance: CALCIUM\VITAMIN D
  10. NATTOKINASE [Concomitant]
     Active Substance: NATTOKINASE

REACTIONS (3)
  - Vomiting [None]
  - Gastritis erosive [None]
  - Chemical burn [None]

NARRATIVE: CASE EVENT DATE: 20250916
